FAERS Safety Report 16379319 (Version 3)
Quarter: 2019Q3

REPORT INFORMATION
  Report Type: Spontaneous
  Country: US (occurrence: US)
  Receive Date: 20190531
  Receipt Date: 20190717
  Transmission Date: 20191004
  Serious: Yes (Life-Threatening, Hospitalization)
  Sender: FDA-Public Use
  Company Number: US-ACTELION-A-NJ2019-191034

PATIENT
  Age: 2 Year
  Sex: Male

DRUGS (9)
  1. LASIX [Concomitant]
     Active Substance: FUROSEMIDE
     Dosage: 10 UNK
  2. CLONIDINE. [Concomitant]
     Active Substance: CLONIDINE
     Dosage: 6 MG
  3. TRACLEER [Suspect]
     Active Substance: BOSENTAN
     Indication: PULMONARY ARTERIAL HYPERTENSION
     Dosage: 17.92 MG, BID
     Route: 048
     Dates: start: 20190118
  4. TRACLEER [Suspect]
     Active Substance: BOSENTAN
     Dosage: 18 MG
     Route: 048
  5. LASIX [Concomitant]
     Active Substance: FUROSEMIDE
     Dosage: 6 MG
  6. ALBUTEROL. [Concomitant]
     Active Substance: ALBUTEROL
     Dosage: UNK, QID
  7. TRACLEER [Suspect]
     Active Substance: BOSENTAN
     Dosage: 20 MG, BID
     Route: 048
  8. POLY-VI-SOL [Concomitant]
     Active Substance: VITAMINS
     Dosage: 1 ML
  9. DIURIL [Concomitant]
     Active Substance: CHLOROTHIAZIDE
     Dosage: 100 MG, BID

REACTIONS (6)
  - Oesophagogastric fundoplasty [Unknown]
  - Heart disease congenital [Unknown]
  - Pulmonary hypertension [Unknown]
  - Respiratory distress [Unknown]
  - Tracheostomy [Unknown]
  - Jugular vein thrombosis [Unknown]

NARRATIVE: CASE EVENT DATE: 20190521
